FAERS Safety Report 9300076 (Version 2)
Quarter: 2013Q2

REPORT INFORMATION
  Report Type: Spontaneous
  Country: US (occurrence: None)
  Receive Date: 20121231
  Receipt Date: 20130402
  Transmission Date: 20140414
  Serious: Yes (Hospitalization, Other)
  Sender: FDA-Public Use
  Company Number: RB-47038-2012

PATIENT
  Sex: Male

DRUGS (3)
  1. SUBOXONE [Suspect]
     Indication: PRODUCT USED FOR UNKNOWN INDICATION
     Dosage: SUBOXONE FILM, DOSING DETAILS UNKNOWN TRANSPLACENTAL)
     Route: 064
     Dates: end: 201205
  2. PRENATAL VITAMINS [Suspect]
     Indication: PRODUCT USED FOR UNKNOWN INDICATION
     Route: 064
  3. NICOTINE [Suspect]
     Indication: PRODUCT USED FOR UNKNOWN INDICATION
     Dosage: CIGARETES
     Route: 064
     Dates: start: 201201, end: 201203

REACTIONS (8)
  - Drug withdrawal syndrome neonatal [None]
  - Foetal exposure during pregnancy [None]
  - Respiratory rate increased [None]
  - Arrhythmia [None]
  - Gastrooesophageal reflux disease [None]
  - Milk allergy [None]
  - Jaundice [None]
  - Infection [None]
